FAERS Safety Report 9968044 (Version 1)
Quarter: 2014Q1

REPORT INFORMATION
  Report Type: Report from Study
  Country: US (occurrence: US)
  Receive Date: 20140306
  Receipt Date: 20140306
  Transmission Date: 20141002
  Serious: No
  Sender: FDA-Public Use
  Company Number: US-ABBVIE-13P-163-1144543-00

PATIENT
  Sex: Male

DRUGS (2)
  1. HUMIRA [Suspect]
     Indication: CROHN^S DISEASE
     Dates: start: 20130830
  2. HUMIRA [Suspect]
     Dosage: STARTING BACK AFTER 4 MONTHS TAKEN OFF HUMIRA
     Dates: start: 20130830

REACTIONS (1)
  - Skin disorder [Recovering/Resolving]
